FAERS Safety Report 17730933 (Version 1)
Quarter: 2020Q2

REPORT INFORMATION
  Report Type: Spontaneous
  Country: PT (occurrence: PT)
  Receive Date: 20200430
  Receipt Date: 20200430
  Transmission Date: 20200714
  Serious: Yes (Life-Threatening, Hospitalization)
  Sender: FDA-Public Use
  Company Number: PT-ROCHE-2591817

PATIENT
  Age: 59 Year
  Sex: Female

DRUGS (1)
  1. ACTILYSE [Suspect]
     Active Substance: ALTEPLASE
     Indication: ISCHAEMIC STROKE
     Dosage: 2H 50 MIN AFTER SYMPTOM ONSET
     Route: 042

REACTIONS (4)
  - Cardiogenic shock [Recovered/Resolved]
  - Coma [Recovered/Resolved]
  - Cardiac tamponade [Recovering/Resolving]
  - Pericardial haemorrhage [Recovering/Resolving]
